FAERS Safety Report 7700156-9 (Version None)
Quarter: 2011Q3

REPORT INFORMATION
  Report Type: 
  Country: None (occurrence: None)
  Receive Date: 20110822
  Receipt Date: 20110817
  Transmission Date: 20111222
  Serious: Yes (Other)
  Sender: FDA-Public Use
  Company Number: US-PFIZER INC-2011190192

PATIENT
  Sex: Male
  Weight: 64 kg

DRUGS (8)
  1. CHANTIX [Suspect]
     Dosage: UNK
     Route: 048
     Dates: start: 20110101
  2. CIPROFLOXACIN [Concomitant]
     Indication: LOCALISED INFECTION
     Dosage: UNK
  3. BUSPIRONE [Concomitant]
     Indication: DEPRESSION
     Dosage: UNK
  4. CHANTIX [Suspect]
     Indication: SMOKING CESSATION THERAPY
     Dosage: 0.5 MG, 1X/DAY
     Route: 048
     Dates: start: 20110725, end: 20110101
  5. EXCEDRIN P.M. [Concomitant]
     Indication: SLEEP DISORDER
     Dosage: UNK
  6. SIMVASTATIN [Concomitant]
     Indication: BLOOD CHOLESTEROL INCREASED
     Dosage: UNK
  7. FISH OIL [Concomitant]
     Indication: VITAMIN SUPPLEMENTATION
     Dosage: UNK
  8. LORAZEPAM [Concomitant]
     Indication: ANXIETY
     Dosage: UNK

REACTIONS (4)
  - ANGINA PECTORIS [None]
  - ANXIETY [None]
  - DISORIENTATION [None]
  - FEELING ABNORMAL [None]
